FAERS Safety Report 20596233 (Version 2)
Quarter: 2022Q2

REPORT INFORMATION
  Report Type: Spontaneous
  Country: FR (occurrence: FR)
  Receive Date: 20220315
  Receipt Date: 20220627
  Transmission Date: 20220721
  Serious: Yes (Other)
  Sender: FDA-Public Use
  Company Number: FR-ROCHE-3012035

PATIENT
  Age: 23 Year
  Sex: Male

DRUGS (7)
  1. MYCOPHENOLATE MOFETIL [Suspect]
     Active Substance: MYCOPHENOLATE MOFETIL
     Indication: Susac^s syndrome
     Dosage: 1 GRAM, QD (START DATE: 2010)
     Route: 065
     Dates: end: 2017
  2. AZATHIOPRINE [Suspect]
     Active Substance: AZATHIOPRINE
     Indication: Susac^s syndrome
     Dosage: 150 MILLIGRAM, QD (START DATE: 2018)
     Route: 065
     Dates: end: 2019
  3. CYCLOPHOSPHAMIDE [Suspect]
     Active Substance: CYCLOPHOSPHAMIDE
     Indication: Susac^s syndrome
     Dosage: 750 MILLIGRAM/SQ. METER, CYCLE (12 CYCLES) (START DATE: 2017)
     Route: 065
     Dates: end: 2018
  4. CYCLOPHOSPHAMIDE [Suspect]
     Active Substance: CYCLOPHOSPHAMIDE
     Dosage: 750 MILLIGRAM/SQ. METER, CYCLE (12 CYCLES) (START DATE: 2009)
     Route: 065
     Dates: end: 2010
  5. RITUXIMAB [Suspect]
     Active Substance: RITUXIMAB
     Indication: Susac^s syndrome
     Dosage: 1 GRAM, FOR EVERY 6 MONTHS (START DATE: 2019)
     Route: 065
     Dates: end: 2020
  6. TOCILIZUMAB [Suspect]
     Active Substance: TOCILIZUMAB
     Indication: Susac^s syndrome
     Dosage: 600 MILLIGRAM, MONTHLY (START DATE: 2020)
     Route: 065
     Dates: end: 2021
  7. INFLIXIMAB [Concomitant]
     Active Substance: INFLIXIMAB
     Indication: Susac^s syndrome
     Dosage: 5 MILLIGRAM/KILOGRAM, MONTHLY (START DATE: 2021)
     Route: 065

REACTIONS (5)
  - Neoplasm [Unknown]
  - Drug ineffective [Unknown]
  - Nervous system disorder [Unknown]
  - Disease progression [Unknown]
  - Off label use [Unknown]

NARRATIVE: CASE EVENT DATE: 20080101
